FAERS Safety Report 8621251-6 (Version None)
Quarter: 2012Q3

REPORT INFORMATION
  Report Type: 
  Country: None (occurrence: None)
  Receive Date: 20120824
  Receipt Date: 20120803
  Transmission Date: 20120928
  Serious: No
  Sender: FDA-Public Use
  Company Number: US-009507513-1208USA006299

PATIENT

DRUGS (3)
  1. MIRALAX [Suspect]
     Dosage: 17 G, UNKNOWN
     Route: 048
     Dates: start: 20120701
  2. MIRALAX [Suspect]
     Dosage: UNK UNK, UNKNOWN
     Route: 048
     Dates: start: 20100101
  3. MIRALAX [Suspect]
     Indication: PRODUCT USED FOR UNKNOWN INDICATION
     Dosage: 12.75 G, UNKNOWN
     Route: 048
     Dates: start: 20120701

REACTIONS (3)
  - ABDOMINAL PAIN UPPER [None]
  - DIARRHOEA [None]
  - INCORRECT DRUG ADMINISTRATION DURATION [None]
